FAERS Safety Report 7486379-5 (Version None)
Quarter: 2011Q2

REPORT INFORMATION
  Report Type: 
  Country: None (occurrence: None)
  Receive Date: 20110517
  Receipt Date: 20110510
  Transmission Date: 20111010
  Serious: Yes (Hospitalization, Other)
  Sender: FDA-Public Use
  Company Number: IE-MEDIMMUNE-MEDI-0011922

PATIENT
  Sex: Female
  Weight: 7.48 kg

DRUGS (7)
  1. SYNAGIS [Suspect]
     Route: 030
     Dates: start: 20101208, end: 20110306
  2. FERROUS SULFATE TAB [Concomitant]
     Dates: start: 20100215
  3. BECLOMETASONE DIPROPIONATE [Concomitant]
     Route: 055
     Dates: start: 20110105
  4. ALBUTEROL [Concomitant]
     Route: 055
     Dates: start: 20110105
  5. SYNAGIS [Suspect]
     Route: 030
     Dates: start: 20101006, end: 20101006
  6. SYNAGIS [Suspect]
     Route: 030
     Dates: start: 20101106, end: 20101106
  7. COLECALCIFEROL [Concomitant]
     Route: 048
     Dates: start: 20100610

REACTIONS (6)
  - WHEEZING [None]
  - RHINORRHOEA [None]
  - PULMONARY CONGESTION [None]
  - COUGH [None]
  - COLLAPSE OF LUNG [None]
  - DYSPNOEA [None]
